FAERS Safety Report 5468099-1 (Version None)
Quarter: 2007Q3

REPORT INFORMATION
  Report Type: 
  Country: None (occurrence: None)
  Receive Date: 20070921
  Receipt Date: 20070905
  Transmission Date: 20080115
  Serious: Yes (Disabling)
  Sender: FDA-Public Use
  Company Number: 2007RR-09859

PATIENT
  Age: 55 Year
  Sex: Female

DRUGS (2)
  1. ATENOLOL [Suspect]
     Dosage: 100MG TABLETS
  2. NAPROXEN [Suspect]

REACTIONS (3)
  - LICHENOID KERATOSIS [None]
  - NO THERAPEUTIC RESPONSE [None]
  - STOMATITIS [None]
